FAERS Safety Report 4437914-2 (Version None)
Quarter: 2004Q3

REPORT INFORMATION
  Report Type: 
  Country: None (occurrence: None)
  Receive Date: 20040831
  Receipt Date: 20040819
  Transmission Date: 20050211
  Serious: Yes (Hospitalization)
  Sender: FDA-Public Use
  Company Number: FR-JNJFOC-20040806441

PATIENT
  Age: 72 Year
  Sex: Female

DRUGS (1)
  1. REMINYL [Suspect]
     Route: 049
     Dates: start: 20030701, end: 20040818

REACTIONS (5)
  - DISEASE RECURRENCE [None]
  - LOSS OF CONSCIOUSNESS [None]
  - MALAISE [None]
  - SYNCOPE [None]
  - VOMITING [None]
